FAERS Safety Report 6235670-9 (Version None)
Quarter: 2009Q2

REPORT INFORMATION
  Report Type: 
  Country: None (occurrence: None)
  Receive Date: 20090616
  Receipt Date: 20090608
  Transmission Date: 20091009
  Serious: Yes (Other)
  Sender: FDA-Public Use
  Company Number: SPV1-2009-01180

PATIENT
  Age: 33 Year
  Sex: Female

DRUGS (2)
  1. LIALDA [Suspect]
     Indication: COLITIS ULCERATIVE
     Dosage: G, ORAL; 2.4 G, 2X/DAY:BID, ORAL
     Route: 048
     Dates: start: 20080101, end: 20090510
  2. LIALDA [Suspect]
     Indication: COLITIS ULCERATIVE
     Dosage: G, ORAL; 2.4 G, 2X/DAY:BID, ORAL
     Route: 048
     Dates: start: 20090511

REACTIONS (3)
  - BONE MARROW FAILURE [None]
  - COLITIS ULCERATIVE [None]
  - CONDITION AGGRAVATED [None]
